FAERS Safety Report 11433616 (Version 1)
Quarter: 2015Q3

REPORT INFORMATION
  Report Type: Spontaneous
  Country: GB (occurrence: GB)
  Receive Date: 20150831
  Receipt Date: 20150831
  Transmission Date: 20151125
  Serious: Yes (Other)
  Sender: FDA-Public Use
  Company Number: GB-DRREDDYS-GER/UKI/15/0050331

PATIENT
  Age: 30 Year
  Sex: Female
  Weight: 70 kg

DRUGS (14)
  1. DIHYDROCODEINE [Concomitant]
     Active Substance: DIHYDROCODEINE
     Indication: PELVIC PAIN
     Dates: start: 2007, end: 2013
  2. DULOXETINE. [Concomitant]
     Active Substance: DULOXETINE
     Indication: PELVIC PAIN
     Dates: start: 201309, end: 201505
  3. MERCILON [Concomitant]
     Active Substance: DESOGESTREL\ETHINYL ESTRADIOL
     Indication: MENORRHAGIA
     Dates: start: 1994, end: 200605
  4. COCODAMOL [Concomitant]
     Active Substance: ACETAMINOPHEN\CODEINE PHOSPHATE
     Indication: PELVIC PAIN
     Dates: start: 200603, end: 2013
  5. DIAZEPAM. [Concomitant]
     Active Substance: DIAZEPAM
     Indication: TENSION HEADACHE
     Dates: start: 2007, end: 2013
  6. DICLOFENAC [Concomitant]
     Active Substance: DICLOFENAC
     Indication: PELVIC PAIN
     Dates: start: 200701, end: 201310
  7. NAPROXEN. [Concomitant]
     Active Substance: NAPROXEN
     Indication: PELVIC PAIN
     Dates: start: 2013, end: 2013
  8. FEMODENE [Concomitant]
     Indication: PRODUCT USED FOR UNKNOWN INDICATION
     Dates: start: 200605, end: 201201
  9. MIRENA [Concomitant]
     Active Substance: LEVONORGESTREL
     Indication: ENDOMETRIOSIS
     Dates: start: 201201, end: 201209
  10. AMITRIPTYLINE [Concomitant]
     Active Substance: AMITRIPTYLINE
     Indication: PELVIC PAIN
     Dates: start: 200612, end: 200612
  11. TRAMADOL. [Concomitant]
     Active Substance: TRAMADOL
     Indication: PELVIC PAIN
     Dates: start: 200701, end: 201310
  12. YASMIN [Concomitant]
     Active Substance: DROSPIRENONE\ETHINYL ESTRADIOL
     Indication: ENDOMETRIOSIS
     Dates: start: 201209
  13. SERTRALINE [Suspect]
     Active Substance: SERTRALINE HYDROCHLORIDE
     Indication: DEPRESSION
     Dosage: 50-150MG DAILY
     Route: 048
     Dates: start: 200204
  14. OMEPRAZOLE. [Concomitant]
     Active Substance: OMEPRAZOLE
     Indication: GASTRITIS
     Dates: start: 2006, end: 2013

REACTIONS (2)
  - Feeling hot [Recovered/Resolved]
  - Hyperhidrosis [Recovered/Resolved]

NARRATIVE: CASE EVENT DATE: 200204
